FAERS Safety Report 24352662 (Version 1)
Quarter: 2024Q3

REPORT INFORMATION
  Report Type: Report from Study
  Country: CN (occurrence: CN)
  Receive Date: 20240923
  Receipt Date: 20240923
  Transmission Date: 20241017
  Serious: No
  Sender: ROCHE
  Company Number: CN-ROCHE-3413893

PATIENT
  Age: 52 Year
  Sex: Female
  Weight: 56.0 kg

DRUGS (3)
  1. HERCEPTIN [Suspect]
     Active Substance: TRASTUZUMAB
     Indication: HER2 positive breast cancer
     Dosage: 13 CYCLES, UNKNOWN THERAPY DETAILS
     Route: 065
     Dates: start: 2022
  2. PERJETA [Suspect]
     Active Substance: PERTUZUMAB
     Indication: HER2 positive breast cancer
     Dosage: 13 CYCLES, UNKNOWN THERAPY DETAILS
     Route: 065
     Dates: start: 2022
  3. KADCYLA [Suspect]
     Active Substance: ADO-TRASTUZUMAB EMTANSINE
     Indication: HER2 positive breast cancer
     Dosage: 100 MG PER VIAL OR 160 MG PER VIAL, INTRAVENOUS INFUSION
     Route: 042
     Dates: start: 20230315

REACTIONS (9)
  - Contusion [Not Recovered/Not Resolved]
  - Pruritus [Recovered/Resolved]
  - Abdominal discomfort [Recovered/Resolved]
  - Myalgia [Recovering/Resolving]
  - Temperature intolerance [Not Recovered/Not Resolved]
  - Dizziness [Recovered/Resolved]
  - Nausea [Recovered/Resolved]
  - Vomiting [Recovered/Resolved]
  - Poor quality sleep [Unknown]

NARRATIVE: CASE EVENT DATE: 20230315
